FAERS Safety Report 7959373-5 (Version None)
Quarter: 2011Q4

REPORT INFORMATION
  Report Type: 
  Country: None (occurrence: None)
  Receive Date: 20111206
  Receipt Date: 20111128
  Transmission Date: 20120403
  Serious: Yes (Hospitalization)
  Sender: FDA-Public Use
  Company Number: US-GILEAD-2011-0047384

PATIENT
  Age: 33 Year
  Sex: Female

DRUGS (4)
  1. SPECTINOMYCIN HYDROCHLORIDE [Concomitant]
     Route: 030
  2. TENOFOVIR DISOPROXIL FUMARATE [Suspect]
     Dosage: UNK
     Dates: start: 20090206
  3. DOXYCYCLINE [Concomitant]
  4. METRONIDAZOLE [Concomitant]

REACTIONS (1)
  - MALARIA [None]
